FAERS Safety Report 9236301 (Version 3)
Quarter: 2018Q1

REPORT INFORMATION
  Report Type: Spontaneous
  Country: JP (occurrence: JP)
  Receive Date: 20130417
  Receipt Date: 20180129
  Transmission Date: 20180509
  Serious: Yes (Other)
  Sender: FDA-Public Use
  Company Number: JP-PFIZER INC-2013116405

PATIENT
  Age: 74 Year

DRUGS (2)
  1. THIAMAZOLE [Concomitant]
     Active Substance: METHIMAZOLE
     Dosage: 5 MG, DAILY
  2. METHYLPREDNISOLONE SODIUM SUCCINATE. [Suspect]
     Active Substance: METHYLPREDNISOLONE SODIUM SUCCINATE
     Indication: ENDOCRINE OPHTHALMOPATHY
     Dosage: 500 MG FOR 3 DAYS WITH 4-DAY DRUG INTERRUPTION WAS PERFORMED IN 3 CYCLES
     Route: 041

REACTIONS (2)
  - Diabetes mellitus [Unknown]
  - Hyperglycaemia [Unknown]
